FAERS Safety Report 9558898 (Version 2)
Quarter: 2013Q4

REPORT INFORMATION
  Report Type: Spontaneous
  Country: MX (occurrence: MX)
  Receive Date: 20130927
  Receipt Date: 20131007
  Transmission Date: 20140711
  Serious: Yes (Hospitalization)
  Sender: FDA-Public Use
  Company Number: PHHY2013MX104939

PATIENT
  Age: 15 Year
  Sex: Female

DRUGS (3)
  1. CO-TRIMOXAZOLE [Suspect]
     Indication: PHARYNGITIS BACTERIAL
     Dosage: 1 DF, Q8H (THE DOSE PER TABLET WAS NOT SPECIFIED)
  2. NITROFURANTOIN [Concomitant]
  3. FLUCONAZOLE [Concomitant]

REACTIONS (12)
  - Bladder dilatation [Unknown]
  - Dysuria [Recovered/Resolved]
  - Burning sensation [Unknown]
  - Vulvovaginal pain [Unknown]
  - Drug eruption [Unknown]
  - Type IV hypersensitivity reaction [Unknown]
  - Vulvovaginal discomfort [Unknown]
  - Vulval disorder [Unknown]
  - Vulvovaginal erythema [Unknown]
  - Skin hyperpigmentation [Unknown]
  - Dermatitis bullous [Unknown]
  - Vulvovaginal pruritus [Unknown]
